FAERS Safety Report 7076572-8 (Version None)
Quarter: 2010Q4

REPORT INFORMATION
  Report Type: 
  Country: None (occurrence: None)
  Receive Date: 20101101
  Receipt Date: 20101025
  Transmission Date: 20110411
  Serious: Yes (Other)
  Sender: FDA-Public Use
  Company Number: BE-PFIZER INC-2010135631

PATIENT

DRUGS (1)
  1. XALATAN [Suspect]
     Dosage: UNK
     Route: 031

REACTIONS (1)
  - HEPATIC FUNCTION ABNORMAL [None]
